FAERS Safety Report 14898461 (Version 3)
Quarter: 2020Q1

REPORT INFORMATION
  Report Type: Spontaneous
  Country: US (occurrence: US)
  Receive Date: 20180515
  Receipt Date: 20200218
  Transmission Date: 20200409
  Serious: Yes (Other)
  Sender: FDA-Public Use
  Company Number: US-PFIZER INC-2018197177

PATIENT
  Age: 67 Year
  Sex: Male
  Weight: 84 kg

DRUGS (2)
  1. XELJANZ XR [Suspect]
     Active Substance: TOFACITINIB CITRATE
     Dosage: 11 MG, UNK
  2. XELJANZ XR [Suspect]
     Active Substance: TOFACITINIB CITRATE
     Indication: RHEUMATOID ARTHRITIS
     Dosage: 11 MG, UNK

REACTIONS (4)
  - Eye ulcer [Unknown]
  - Lower limb fracture [Recovering/Resolving]
  - Macular degeneration [Unknown]
  - Fall [Unknown]

NARRATIVE: CASE EVENT DATE: 201911
